FAERS Safety Report 8975050 (Version 1)
Quarter: 2012Q4

REPORT INFORMATION
  Report Type: Report from Study
  Country: IL (occurrence: IL)
  Receive Date: 20121220
  Receipt Date: 20121220
  Transmission Date: 20130627
  Serious: Yes (Hospitalization)
  Sender: FDA-Public Use
  Company Number: IL-SANOFI-AVENTIS-2012SA091635

PATIENT
  Age: 53 Year
  Sex: Female

DRUGS (7)
  1. DOCETAXEL [Suspect]
     Indication: BREAST CANCER
     Route: 042
     Dates: start: 20021204, end: 20021204
  2. TRASTUZUMAB [Suspect]
     Indication: BREAST CANCER
     Route: 042
     Dates: start: 20021203, end: 20021203
  3. CARBOPLATIN [Suspect]
     Indication: BREAST CANCER
     Route: 042
     Dates: start: 20021204, end: 20021204
  4. DEXAMETHASONE SODIUM PHOSPHATE [Suspect]
     Indication: BREAST CANCER
     Route: 048
     Dates: start: 20021203, end: 20021203
  5. DEXAMETHASONE SODIUM PHOSPHATE [Suspect]
     Indication: BREAST CANCER
     Route: 042
     Dates: start: 20021204, end: 20021204
  6. DEXAMETHASONE SODIUM PHOSPHATE [Suspect]
     Indication: BREAST CANCER
     Route: 048
     Dates: start: 20021205, end: 20021205
  7. GRANISETRON [Concomitant]
     Indication: PREMEDICATION
     Route: 042
     Dates: start: 20021204, end: 20021204

REACTIONS (3)
  - Metabolic acidosis [Recovered/Resolved]
  - Febrile neutropenia [Recovered/Resolved]
  - Hyperglycaemia [Recovered/Resolved]
